FAERS Safety Report 10545812 (Version 1)
Quarter: 2014Q4

REPORT INFORMATION
  Report Type: Report from Study
  Country: US (occurrence: US)
  Receive Date: 20141027
  Receipt Date: 20141027
  Transmission Date: 20150529
  Serious: No
  Sender: FDA-Public Use
  Company Number: US-ABBVIE-14P-163-1229434-00

PATIENT
  Age: 22 Year
  Sex: Female
  Weight: 88.53 kg

DRUGS (2)
  1. NORETHINDRONE ACETATE GLENMARK [Concomitant]
     Indication: ADJUVANT THERAPY
     Dates: start: 201403
  2. LUPRON DEPOT [Suspect]
     Active Substance: LEUPROLIDE ACETATE
     Indication: ENDOMETRIOSIS
     Dates: start: 20140313, end: 201404

REACTIONS (5)
  - Palpitations [Recovering/Resolving]
  - Pruritus [Recovering/Resolving]
  - Dizziness [Recovering/Resolving]
  - Lymphadenopathy [Recovering/Resolving]
  - Headache [Recovering/Resolving]

NARRATIVE: CASE EVENT DATE: 201403
